FAERS Safety Report 25113728 (Version 1)
Quarter: 2025Q1

REPORT INFORMATION
  Report Type: Spontaneous
  Country: US (occurrence: US)
  Receive Date: 20250324
  Receipt Date: 20250324
  Transmission Date: 20250409
  Serious: No
  Sender: AMARIN
  Company Number: US-Amarin Pharma  Inc-2025AMR000060

PATIENT
  Age: 68 Year
  Sex: Male

DRUGS (3)
  1. VASCEPA [Suspect]
     Active Substance: ICOSAPENT ETHYL
     Indication: Cardiovascular event prophylaxis
     Dates: start: 2020, end: 202412
  2. VASCEPA [Suspect]
     Active Substance: ICOSAPENT ETHYL
     Dosage: 4 CAPSULES PER DAY
     Dates: start: 202412, end: 202501
  3. VASCEPA [Suspect]
     Active Substance: ICOSAPENT ETHYL
     Dosage: RESUMED
     Dates: start: 202501

REACTIONS (9)
  - Retching [Unknown]
  - Vomiting [Unknown]
  - Blood triglycerides increased [Unknown]
  - Incorrect dose administered [Unknown]
  - Poor quality product administered [Unknown]
  - Product after taste [Unknown]
  - Product odour abnormal [Unknown]
  - Product physical issue [Unknown]
  - Product taste abnormal [Unknown]

NARRATIVE: CASE EVENT DATE: 20250101
